FAERS Safety Report 22347740 (Version 1)
Quarter: 2023Q2

REPORT INFORMATION
  Report Type: Spontaneous
  Country: US (occurrence: US)
  Receive Date: 20230522
  Receipt Date: 20230522
  Transmission Date: 20230721
  Serious: No
  Sender: FDA-Public Use
  Company Number: US-PERRIGO-22US016637

PATIENT
  Age: 73 Year
  Sex: Female
  Weight: 67.57 kg

DRUGS (10)
  1. OMEPRAZOLE [Suspect]
     Active Substance: OMEPRAZOLE
     Indication: Gastrooesophageal reflux disease
     Dosage: 20 MG, QD
     Route: 048
     Dates: start: 202202, end: 202211
  2. OMEPRAZOLE [Suspect]
     Active Substance: OMEPRAZOLE
     Indication: Gastrooesophageal reflux disease
     Dosage: 20 MG, QD
     Route: 048
     Dates: start: 202211, end: 20221222
  3. LOSARTAN [Suspect]
     Active Substance: LOSARTAN
     Indication: Hypertension
     Dosage: 50 MG, QD
     Route: 065
     Dates: start: 2019
  4. LEVOTHYROXINE [Concomitant]
     Active Substance: LEVOTHYROXINE
     Indication: Thyroidectomy
     Dosage: UNK
     Route: 065
     Dates: start: 2005
  5. TRAVOPROST [Concomitant]
     Active Substance: TRAVOPROST
     Indication: Glaucoma
     Dosage: UNK
     Route: 065
     Dates: start: 2019
  6. CALCIUM [Concomitant]
     Active Substance: CALCIUM
     Indication: Thyroidectomy
     Dosage: UNK
     Route: 065
  7. AMLODIPINE [Concomitant]
     Active Substance: AMLODIPINE BESYLATE
     Indication: Hypertension
     Dosage: 5 MG, UNKNOWN
     Route: 065
     Dates: start: 20221202
  8. AMLODIPINE [Concomitant]
     Active Substance: AMLODIPINE BESYLATE
     Dosage: 10 MG, UNKNOWN
     Route: 065
     Dates: start: 202112, end: 20221201
  9. HYDROCHLOROTHIAZIDE [Concomitant]
     Active Substance: HYDROCHLOROTHIAZIDE
     Indication: Fluid retention
     Dosage: UNK
     Route: 065
     Dates: start: 202210, end: 202210
  10. VITAMIN D3 [Concomitant]
     Active Substance: CHOLECALCIFEROL
     Indication: Osteopenia
     Dosage: UNK
     Route: 065

REACTIONS (3)
  - Peripheral swelling [Recovering/Resolving]
  - Drug ineffective for unapproved indication [Recovered/Resolved]
  - Incorrect product administration duration [Recovered/Resolved]

NARRATIVE: CASE EVENT DATE: 20220201
